FAERS Safety Report 7627133-0 (Version None)
Quarter: 2011Q3

REPORT INFORMATION
  Report Type: 
  Country: None (occurrence: None)
  Receive Date: 20110721
  Receipt Date: 20110712
  Transmission Date: 20111222
  Serious: Yes (Other)
  Sender: FDA-Public Use
  Company Number: US-ASTRAZENECA-2011SE41232

PATIENT
  Age: 38 Year
  Sex: Female
  Weight: 56.7 kg

DRUGS (12)
  1. LORCET-HD [Concomitant]
  2. TRICOR [Concomitant]
  3. SEROQUEL [Suspect]
     Indication: BIPOLAR DISORDER
     Route: 048
     Dates: start: 20101201
  4. EFFEXOR [Concomitant]
  5. NEXIUM [Concomitant]
  6. KLONOPIN [Concomitant]
  7. VITAMIN D [Concomitant]
     Dosage: WEEK
  8. PREMARIN [Concomitant]
  9. ALLEGRA D 24 HOUR [Concomitant]
  10. SOMA [Concomitant]
  11. ZOCOR [Concomitant]
  12. FLAXSEED OIL [Concomitant]

REACTIONS (6)
  - LOSS OF CONSCIOUSNESS [None]
  - DYSARTHRIA [None]
  - VERTIGO [None]
  - STRESS [None]
  - HEADACHE [None]
  - CONCUSSION [None]
